FAERS Safety Report 22627808 (Version 1)
Quarter: 2023Q2

REPORT INFORMATION
  Report Type: Spontaneous
  Country: TW (occurrence: TW)
  Receive Date: 20230622
  Receipt Date: 20230622
  Transmission Date: 20230722
  Serious: Yes (Hospitalization, Other)
  Sender: FDA-Public Use
  Company Number: TW-ASTELLAS-2023US018394

PATIENT
  Age: 42 Year
  Sex: Male

DRUGS (14)
  1. TACROLIMUS [Suspect]
     Active Substance: TACROLIMUS
     Indication: Prophylaxis against transplant rejection
     Dosage: TACROLIMUS 6MG Q12H
     Route: 065
     Dates: start: 20130425
  2. TACROLIMUS [Suspect]
     Active Substance: TACROLIMUS
     Dosage: TACROLIMUS 1MG 4PC QDAC
     Route: 065
     Dates: end: 20160705
  3. TACROLIMUS [Suspect]
     Active Substance: TACROLIMUS
     Dosage: TACROLIMUS 1MG 3PC QDAC
     Route: 065
     Dates: start: 20160706
  4. SOLU-MEDROL [Concomitant]
     Active Substance: METHYLPREDNISOLONE SODIUM SUCCINATE
     Indication: Immunosuppression
     Dosage: SOLU-MEDROL 40MG 1PC Q6H
     Route: 065
     Dates: start: 20130425
  5. SOLU-MEDROL [Concomitant]
     Active Substance: METHYLPREDNISOLONE SODIUM SUCCINATE
     Dosage: SOLU-MEDROL 40MG 0.5PC Q6H
     Route: 065
     Dates: start: 20130428, end: 20130428
  6. SOLU-MEDROL [Concomitant]
     Active Substance: METHYLPREDNISOLONE SODIUM SUCCINATE
     Dosage: SOLU-MEDROL 40MG 0.5PC Q8H
     Route: 065
     Dates: start: 20130429, end: 20130429
  7. SOLU-MEDROL [Concomitant]
     Active Substance: METHYLPREDNISOLONE SODIUM SUCCINATE
     Dosage: SOLU-MEDROL 40MG 0.5PC Q12H
     Route: 065
     Dates: start: 20130430, end: 20130430
  8. SOLU-MEDROL [Concomitant]
     Active Substance: METHYLPREDNISOLONE SODIUM SUCCINATE
     Dosage: SOLU-MEDROL 40MG 0.5PC QD
     Route: 065
     Dates: start: 20130501, end: 20130501
  9. ENTECAVIR [Concomitant]
     Active Substance: ENTECAVIR
     Indication: Antibiotic therapy
     Dosage: ENTECAVIR 0.5MG 1PC Q3D
     Route: 065
     Dates: start: 20130426
  10. ENTECAVIR [Concomitant]
     Active Substance: ENTECAVIR
     Dosage: ENTECAVIR 0.5MG QDAC
     Route: 065
     Dates: start: 20160706
  11. SULFAMETHOXAZOLE\TRIMETHOPRIM [Concomitant]
     Active Substance: SULFAMETHOXAZOLE\TRIMETHOPRIM
     Indication: Antibiotic therapy
     Dosage: BAKTAR 400/80MG 1PC QD
     Route: 065
     Dates: start: 20130425
  12. VALGANCICLOVIR [Concomitant]
     Active Substance: VALGANCICLOVIR
     Indication: Antibiotic therapy
     Dosage: VALGANCICLOVIR 450MG 1 PC QD
     Route: 065
     Dates: start: 20130426
  13. MYCOPHENOLIC ACID [Concomitant]
     Active Substance: MYCOPHENOLIC ACID
     Indication: Immunosuppression
     Dosage: MYCOPHENOLATE 180MG 2PC Q12H
     Route: 065
     Dates: start: 20130427
  14. MYCOPHENOLIC ACID [Concomitant]
     Active Substance: MYCOPHENOLIC ACID
     Dosage: SODIUM MYCOPHENOLATE 180MG 4PC BID
     Route: 065

REACTIONS (15)
  - Chronic allograft nephropathy [Unknown]
  - Glomerulosclerosis [Unknown]
  - Hepatitis B [Unknown]
  - Proteinuria [Unknown]
  - Hepatic steatosis [Unknown]
  - Gallbladder polyp [Unknown]
  - Renal disorder [Unknown]
  - IgA nephropathy [Unknown]
  - Disease recurrence [Unknown]
  - Renal tubular injury [Unknown]
  - Renal cyst [Unknown]
  - Urinary tract infection [Unknown]
  - Histology abnormal [Unknown]
  - Fatigue [Recovering/Resolving]
  - Calcinosis [Unknown]

NARRATIVE: CASE EVENT DATE: 20160101
